FAERS Safety Report 4994569-6 (Version None)
Quarter: 2006Q2

REPORT INFORMATION
  Report Type: 
  Country: None (occurrence: None)
  Receive Date: 20060505
  Receipt Date: 20060425
  Transmission Date: 20061013
  Serious: Yes (Other)
  Sender: FDA-Public Use
  Company Number: US-MERCK-0604USA04159

PATIENT
  Sex: Female

DRUGS (1)
  1. VIOXX [Suspect]
     Route: 048
     Dates: start: 19990101, end: 20040523

REACTIONS (4)
  - CARDIOVASCULAR DISORDER [None]
  - INJURY [None]
  - ORGAN FAILURE [None]
  - TRANSIENT ISCHAEMIC ATTACK [None]
